FAERS Safety Report 7057157-6 (Version None)
Quarter: 2010Q4

REPORT INFORMATION
  Report Type: 
  Country: None (occurrence: None)
  Receive Date: 20101022
  Receipt Date: 20101012
  Transmission Date: 20110411
  Serious: Yes (Other)
  Sender: FDA-Public Use
  Company Number: PHHY2010CO68432

PATIENT
  Age: 75 Year
  Sex: Female

DRUGS (1)
  1. ACLASTA [Suspect]
     Indication: OSTEOPOROSIS
     Dosage: 5MG/100ML, ONE INFUSION PER YEAR
     Route: 042
     Dates: start: 20100927

REACTIONS (3)
  - CHEST DISCOMFORT [None]
  - HYPERTENSION [None]
  - TACHYCARDIA [None]
